FAERS Safety Report 4971426-2 (Version None)
Quarter: 2006Q2

REPORT INFORMATION
  Report Type: 
  Country: None (occurrence: None)
  Receive Date: 20060411
  Receipt Date: 20060411
  Transmission Date: 20061013
  Serious: Yes (Death)
  Sender: FDA-Public Use
  Company Number: None

PATIENT
  Age: 67 Year
  Sex: Male

DRUGS (2)
  1. FUROSEMIDE [Suspect]
     Indication: HYPERCALCAEMIA
     Dosage: 40 MG DAILY IV
     Route: 042
     Dates: start: 20051003, end: 20051010
  2. FUROSEMIDE [Suspect]
     Indication: PANCREATIC CARCINOMA METASTATIC
     Dosage: 40 MG DAILY IV
     Route: 042
     Dates: start: 20051003, end: 20051010

REACTIONS (6)
  - ACUTE PRERENAL FAILURE [None]
  - CARDIO-RESPIRATORY ARREST [None]
  - DEHYDRATION [None]
  - DRUG RESISTANCE [None]
  - HYPERCALCAEMIA [None]
  - PANCREATIC CARCINOMA METASTATIC [None]
